FAERS Safety Report 20108189 (Version 1)
Quarter: 2021Q4

REPORT INFORMATION
  Report Type: Other
  Country: US (occurrence: None)
  Receive Date: 20211124
  Receipt Date: 20211124
  Transmission Date: 20220303
  Serious: Yes (Hospitalization)
  Sender: FDA-Public Use
  Company Number: US-ROCHE-2959721

PATIENT
  Age: 41 Year
  Sex: Female
  Weight: 95.340 kg

DRUGS (17)
  1. OCREVUS [Suspect]
     Active Substance: OCRELIZUMAB
     Indication: Relapsing-remitting multiple sclerosis
     Dosage: STARTED WHEN IT FIRST BECAME AVAILABLE; ON DAY 1 AND 15 THEN 600 MG SUBSEQUENTLY EVERY 6 MONTHS
     Route: 042
  2. ARMODAFINIL [Concomitant]
     Active Substance: ARMODAFINIL
     Dosage: STARTED A LONG TIME AGO
     Route: 048
  3. SERTRALINE [Concomitant]
     Active Substance: SERTRALINE HYDROCHLORIDE
     Dosage: STARTED ALONG TIME BEFOE OCREVUS ;ONGOING: YES
     Route: 048
  4. BUSPAR [Concomitant]
     Active Substance: BUSPIRONE HYDROCHLORIDE
     Dosage: STARTED ABOUT 2019 OR 2020 DIDNT WORK TOOK FOR A SHORT PERIOD OF TIME ;ONGOING: NO
     Route: 048
  5. NEXIUM [Concomitant]
     Active Substance: ESOMEPRAZOLE MAGNESIUM
     Dosage: STARTED ABOUT 5 TO 6 YEARS AGO ;ONGOING: YES
     Route: 048
  6. LISINOPRIL [Concomitant]
     Active Substance: LISINOPRIL
     Dosage: STARTED ABOUT 15 YEARS AGO ;ONGOING: YES
     Route: 048
  7. ATORVASTATIN [Concomitant]
     Active Substance: ATORVASTATIN
     Dosage: STARTED ABOUT 15 YEARS AGO ;ONGOING: YES
     Route: 048
  8. IBUPROFEN [Concomitant]
     Active Substance: IBUPROFEN
     Dosage: STARTED 25 YEARS AGO    AS NEEDED USSUALLY ONCE AT NIGHT BUT EVERY 6 HOURS WITH COVID-19 FEVER. ;ONG
     Route: 048
  9. TIZANIDINE [Concomitant]
     Active Substance: TIZANIDINE
     Dosage: STARTED ABOUT 1 MONTH AGO ;ONGOING: YES
     Route: 048
     Dates: start: 202110
  10. TIZANIDINE [Concomitant]
     Active Substance: TIZANIDINE
     Dosage: STARTED  ABOUT 10 YEARS AGO   TAKES AS NEEDED  AT NIGHT ;ONGOING: NO
     Route: 048
     Dates: end: 202110
  11. XANAX [Concomitant]
     Active Substance: ALPRAZOLAM
     Dosage: AS NEEDED  BUT USED EVERY DAY FROM FEB OR MAR-2021 TO JUL-2021 ;ONGOING: YES
     Route: 048
     Dates: start: 201907
  12. CANNABIS SATIVA SUBSP. INDICA TOP [Concomitant]
     Active Substance: CANNABIS SATIVA SUBSP. INDICA TOP
     Dosage: STARTED ABOUT 3 YEARS AGO AND HAS A MEDICAL CARD FOR IT ;ONGOING: YES
     Route: 048
  13. APRI [Concomitant]
     Active Substance: DESOGESTREL\ETHINYL ESTRADIOL
     Dosage: STARTED MAYBE 2 YEARS AGO  ONE TABLET EVERY DAY ;ONGOING: YES
     Route: 048
  14. NEUROMAG [Concomitant]
     Dosage: STARTED ABUT 2 YEARS AGO ;ONGOING: YES
     Route: 048
  15. VITAMIN D3 [Concomitant]
     Active Substance: CHOLECALCIFEROL
     Dosage: STARTED ABOUT 15 YEARS AGO ;ONGOING: YES
     Route: 048
  16. ZINC PICOLINATE [Concomitant]
     Active Substance: ZINC PICOLINATE
     Dosage: STARTED ABOUT 2 YEARS AGO, ON FOR 1 YEAR AND OFF FOR 1 YEAR AND NOW JUST RESTARTED ;ONGOING: YES
     Route: 048
  17. MODERNA COVID-19 VACCINE [Concomitant]
     Active Substance: CX-024414
     Dosage: 2 ONE TIME DOSES ;ONGOING: NO
     Route: 030
     Dates: start: 20210217, end: 20210317

REACTIONS (10)
  - Road traffic accident [Recovered/Resolved]
  - Foot fracture [Recovered/Resolved]
  - Rib fracture [Recovered/Resolved]
  - Contusion [Recovered/Resolved]
  - Mobility decreased [Not Recovered/Not Resolved]
  - COVID-19 [Recovered/Resolved]
  - Dysarthria [Recovered/Resolved]
  - Impaired healing [Recovered/Resolved]
  - Bleeding time prolonged [Recovered/Resolved]
  - Arthralgia [Recovered/Resolved]

NARRATIVE: CASE EVENT DATE: 20190701
